FAERS Safety Report 4731661-5 (Version None)
Quarter: 2005Q3

REPORT INFORMATION
  Report Type: 
  Country: None (occurrence: None)
  Receive Date: 20050725
  Receipt Date: 20041207
  Transmission Date: 20060218
  Serious: Yes (Life-Threatening)
  Sender: FDA-Public Use
  Company Number: WAES 0412USA00863

PATIENT
  Age: 60 Year
  Sex: Female

DRUGS (2)
  1. VIOXX [Suspect]
     Dosage: 12.5 MG/DAILY/PO
     Route: 048
     Dates: start: 20000101
  2. VIOXX [Suspect]
     Dosage: 25 MG/DAILY/PO
     Route: 048
     Dates: end: 20030321

REACTIONS (4)
  - DIPLOPIA [None]
  - DRUG INEFFECTIVE [None]
  - HYPERTENSION [None]
  - HYPOAESTHESIA [None]
